FAERS Safety Report 8593112-2 (Version None)
Quarter: 2012Q3

REPORT INFORMATION
  Report Type: 
  Country: None (occurrence: None)
  Receive Date: 20120814
  Receipt Date: 20120802
  Transmission Date: 20120928
  Serious: Yes (Hospitalization, Other)
  Sender: FDA-Public Use
  Company Number: US-ASTRAZENECA-2010SE23525

PATIENT
  Age: 42 Year
  Sex: Female
  Weight: 113.4 kg

DRUGS (28)
  1. SEROQUEL [Suspect]
     Indication: POST-TRAUMATIC STRESS DISORDER
     Dosage: 25 MG THREE TIMES A DAY, 300 MG AT BED TIME
     Route: 048
     Dates: start: 20090601
  2. SEROQUEL [Suspect]
     Indication: PANIC ATTACK
     Dosage: 25 MG THREE TIMES A DAY, 300 MG AT BED TIME
     Route: 048
     Dates: start: 20090601
  3. LANESTA [Concomitant]
     Indication: SLEEP DISORDER
  4. SEROQUEL [Suspect]
     Route: 048
  5. SEROQUEL [Suspect]
     Route: 048
  6. EFFEXOR [Concomitant]
  7. SEROQUEL [Suspect]
     Indication: FLASHBACK
     Dosage: 25 MG THREE TIMES A DAY, 300 MG AT BED TIME
     Route: 048
     Dates: start: 20090601
  8. SEROQUEL [Suspect]
     Route: 048
  9. SEROQUEL [Suspect]
     Route: 048
  10. SEROQUEL [Suspect]
     Route: 048
  11. SEROQUEL [Suspect]
     Route: 048
  12. THYROID PILL [Concomitant]
     Indication: THYROID DISORDER
     Dosage: EVERY MORNING
  13. SEROQUEL [Suspect]
     Indication: DEPRESSION
     Dosage: 25 MG THREE TIMES A DAY, 300 MG AT BED TIME
     Route: 048
     Dates: start: 20090601
  14. SEROQUEL [Suspect]
     Route: 048
  15. SEROQUEL [Suspect]
     Route: 048
  16. SEROQUEL [Suspect]
     Route: 048
  17. AVIANNE [Concomitant]
     Indication: SLEEP DISORDER
  18. PERCOCET [Concomitant]
     Indication: PAIN
     Dosage: PRN
  19. SEROQUEL [Suspect]
     Route: 048
  20. ALBUTERIN [Concomitant]
  21. XANAX [Concomitant]
  22. SEROQUEL [Suspect]
     Indication: ANGER
     Dosage: 25 MG THREE TIMES A DAY, 300 MG AT BED TIME
     Route: 048
     Dates: start: 20090601
  23. SEROQUEL [Suspect]
     Route: 048
  24. SEROQUEL [Suspect]
     Route: 048
  25. ANTIBIOTICS [Concomitant]
     Dosage: PRN
  26. SEROQUEL [Suspect]
     Route: 048
  27. SEROQUEL [Suspect]
     Route: 048
  28. SEROQUEL [Suspect]
     Route: 048

REACTIONS (20)
  - PANIC ATTACK [None]
  - AGITATION [None]
  - WEIGHT INCREASED [None]
  - THERAPEUTIC RESPONSE UNEXPECTED [None]
  - DRUG DOSE OMISSION [None]
  - SOCIAL AVOIDANT BEHAVIOUR [None]
  - ROAD TRAFFIC ACCIDENT [None]
  - GALLBLADDER INJURY [None]
  - EAR INFECTION [None]
  - ANGER [None]
  - FEELING OF DESPAIR [None]
  - GASTROENTERITIS VIRAL [None]
  - LIMB CRUSHING INJURY [None]
  - OFF LABEL USE [None]
  - MALAISE [None]
  - DIARRHOEA [None]
  - INSOMNIA [None]
  - HUNGER [None]
  - VOMITING [None]
  - THERAPEUTIC RESPONSE DECREASED [None]
